FAERS Safety Report 5248927-5 (Version None)
Quarter: 2007Q1

REPORT INFORMATION
  Report Type: 
  Country: None (occurrence: None)
  Receive Date: 20070228
  Receipt Date: 20060912
  Transmission Date: 20070707
  Serious: No
  Sender: FDA-Public Use
  Company Number: 2926147

PATIENT
  Age: 51 Year
  Sex: Male
  Weight: 75.9 kg

DRUGS (5)
  1. ZIAGEN [Suspect]
     Indication: HIV INFECTION
     Dosage: 300MG TWICE PER DAY
     Route: 048
     Dates: start: 20060821
  2. TRIZIVIR [Concomitant]
  3. KALETRA [Concomitant]
  4. INVIRASE [Concomitant]
  5. INVIRASE [Concomitant]

REACTIONS (6)
  - ABDOMINAL PAIN [None]
  - HYPERSENSITIVITY [None]
  - MYALGIA [None]
  - PYREXIA [None]
  - RASH [None]
  - VOMITING [None]
